FAERS Safety Report 10488658 (Version 1)
Quarter: 2014Q3

REPORT INFORMATION
  Report Type: Spontaneous
  Country: US (occurrence: None)
  Receive Date: 20140930
  Receipt Date: 20140930
  Transmission Date: 20150326
  Serious: Yes (Hospitalization)
  Sender: FDA-Public Use
  Company Number: VAL_03436_2014

PATIENT
  Sex: Male

DRUGS (4)
  1. LEVOXYL [Concomitant]
     Active Substance: LEVOTHYROXINE SODIUM
  2. CALCITRIOL. [Suspect]
     Active Substance: CALCITRIOL
     Indication: PRODUCT USED FOR UNKNOWN INDICATION
     Dosage: (DF),  (DF)
  3. NUTROPIN AQ [Suspect]
     Active Substance: SOMATROPIN
     Indication: HYPOPITUITARISM
     Route: 058
  4. DDAVP /00361901/ [Concomitant]

REACTIONS (8)
  - Gait disturbance [None]
  - Drug dose omission [None]
  - Sleep apnoea syndrome [None]
  - Polyuria [None]
  - Polydipsia [None]
  - Balance disorder [None]
  - Multiple allergies [None]
  - Asthenia [None]
